FAERS Safety Report 8098875 (Version 2)
Quarter: 2013Q2

REPORT INFORMATION
  Report Type: Spontaneous
  Country: US (occurrence: US)
  Receive Date: 20110819
  Receipt Date: 20130429
  Transmission Date: 20140414
  Serious: Yes (Death, Other)
  Sender: FDA-Public Use
  Company Number: US-RB-031395-11

PATIENT
  Sex: 0

DRUGS (4)
  1. SUBOXONE TABLET [Suspect]
     Indication: DRUG DEPENDENCE
     Route: 064
     Dates: start: 201008
  2. SUBUTEX [Suspect]
     Indication: DRUG DEPENDENCE
     Route: 064
     Dates: end: 201105
  3. XANAX [Suspect]
     Indication: ANXIETY
     Dosage: DOSING INFORMATION UNKNOWN
     Route: 064
  4. ADDERALL [Suspect]
     Indication: ATTENTION DEFICIT/HYPERACTIVITY DISORDER
     Dosage: DOSING INFORMATION UNKNOWN
     Route: 064

REACTIONS (3)
  - Foetal exposure during pregnancy [Recovered/Resolved]
  - Asphyxia [Fatal]
  - Sudden infant death syndrome [Fatal]
